FAERS Safety Report 5814086-0 (Version None)
Quarter: 2008Q3

REPORT INFORMATION
  Report Type: 
  Country: None (occurrence: None)
  Receive Date: 20080717
  Receipt Date: 20080714
  Transmission Date: 20090109
  Serious: Yes (Death, Hospitalization)
  Sender: FDA-Public Use
  Company Number: SE-BOEHRINGER INGELHEIM GMBH, GERMANY-2008-SW-00176SW

PATIENT
  Sex: Male

DRUGS (2)
  1. PERSANTIN [Suspect]
     Route: 048
     Dates: start: 20080208, end: 20080308
  2. ASPIRIN [Suspect]
     Route: 048
     Dates: end: 20080308

REACTIONS (3)
  - CEREBRAL HAEMORRHAGE [None]
  - DRUG INTERACTION [None]
  - LOSS OF CONSCIOUSNESS [None]
